FAERS Safety Report 5277863-3 (Version None)
Quarter: 2007Q1

REPORT INFORMATION
  Report Type: 
  Country: None (occurrence: None)
  Receive Date: 20070327
  Receipt Date: 20070315
  Transmission Date: 20070707
  Serious: Yes (Other)
  Sender: FDA-Public Use
  Company Number: GB-PFIZER INC-2007020750

PATIENT
  Age: 57 Year
  Sex: Female

DRUGS (1)
  1. DOXYCYCLINE [Suspect]
     Route: 048
     Dates: start: 20060522, end: 20060522

REACTIONS (5)
  - ARTHRALGIA [None]
  - DEHYDRATION [None]
  - FATIGUE [None]
  - OESOPHAGITIS [None]
  - VOMITING [None]
